FAERS Safety Report 5609399-1 (Version None)
Quarter: 2008Q1

REPORT INFORMATION
  Report Type: 
  Country: None (occurrence: None)
  Receive Date: 20080131
  Receipt Date: 20080128
  Transmission Date: 20080703
  Serious: Yes (Other)
  Sender: FDA-Public Use
  Company Number: DE-JNJFOC-20080106991

PATIENT
  Age: 11 Year
  Sex: Male

DRUGS (2)
  1. RISPERDAL [Suspect]
     Route: 048
  2. RISPERDAL [Suspect]
     Indication: IMPULSE-CONTROL DISORDER
     Route: 048

REACTIONS (1)
  - LEUKOPENIA [None]
